FAERS Safety Report 5721267-3 (Version None)
Quarter: 2008Q2

REPORT INFORMATION
  Report Type: 
  Country: None (occurrence: None)
  Receive Date: 20080428
  Receipt Date: 20080428
  Transmission Date: 20081010
  Serious: Yes (Life-Threatening)
  Sender: FDA-Public Use
  Company Number: None

PATIENT
  Age: 60 Year
  Sex: Male
  Weight: 116.1208 kg

DRUGS (1)
  1. LUPRON DEPOT [Suspect]
     Indication: PROSTATE CANCER
     Dosage: 22.5 MG. ONCE IM MONTHS
     Route: 030
     Dates: start: 20070918, end: 20070918

REACTIONS (13)
  - ABASIA [None]
  - BURNING SENSATION [None]
  - CONDITION AGGRAVATED [None]
  - DYSSTASIA [None]
  - ERECTILE DYSFUNCTION [None]
  - HEADACHE [None]
  - HYPERCALCIURIA [None]
  - PAIN IN EXTREMITY [None]
  - PITUITARY TUMOUR [None]
  - PITUITARY-DEPENDENT CUSHING'S SYNDROME [None]
  - RESORPTION BONE INCREASED [None]
  - SEXUAL DYSFUNCTION [None]
  - TINNITUS [None]
